FAERS Safety Report 25237402 (Version 3)
Quarter: 2025Q2

REPORT INFORMATION
  Report Type: Spontaneous
  Country: US (occurrence: US)
  Receive Date: 20250425
  Receipt Date: 20250508
  Transmission Date: 20250716
  Serious: No
  Sender: ROCHE
  Company Number: US-ROCHE-10000265221

PATIENT
  Age: 31 Year
  Sex: Female
  Weight: 51.26 kg

DRUGS (2)
  1. OCREVUS [Suspect]
     Active Substance: OCRELIZUMAB
     Indication: Multiple sclerosis
     Route: 042
     Dates: start: 2021
  2. OCREVUS [Suspect]
     Active Substance: OCRELIZUMAB
     Dosage: RECENT DOSE ON 14/MAR/2025
     Route: 042
     Dates: start: 20220711

REACTIONS (1)
  - Morphoea [Unknown]

NARRATIVE: CASE EVENT DATE: 20250101
